FAERS Safety Report 9190033 (Version 1)
Quarter: 2013Q1

REPORT INFORMATION
  Report Type: Spontaneous
  Country: US (occurrence: US)
  Receive Date: 20130326
  Receipt Date: 20130326
  Transmission Date: 20140127
  Serious: No
  Sender: FDA-Public Use
  Company Number: US-PFIZER INC-2013093247

PATIENT
  Age: 60 Year
  Sex: Female

DRUGS (1)
  1. SOMAVERT [Suspect]
     Indication: HYPOTHALAMO-PITUITARY DISORDER
     Dosage: 10 MG, 1X/DAY
     Route: 058
     Dates: start: 201203

REACTIONS (1)
  - Abdominal distension [Unknown]
